FAERS Safety Report 6442308-4 (Version None)
Quarter: 2009Q4

REPORT INFORMATION
  Report Type: 
  Country: None (occurrence: None)
  Receive Date: 20091112
  Receipt Date: 20091028
  Transmission Date: 20100525
  Serious: Yes (Other)
  Sender: FDA-Public Use
  Company Number: 230004M09ZAF

PATIENT
  Age: 38 Year
  Sex: Female
  Weight: 63 kg

DRUGS (6)
  1. REBIF [Suspect]
     Indication: RELAPSING-REMITTING MULTIPLE SCLEROSIS
     Dosage: 44 MCG, SUBCUTANEOUS
     Route: 058
     Dates: start: 20090501, end: 20090801
  2. ZOLPIDEM TARTRATE [Concomitant]
  3. BRUFIN [BRUFEN] (IBUPROFEN) [Concomitant]
  4. PARACETAMOL [Concomitant]
  5. STEROIDS (CORTICOSTEROIDS) [Concomitant]
  6. NSAIDS (ANTIINFLAMMATORY/ANTIRHEUMATIC NON-STEROIDS) [Concomitant]

REACTIONS (10)
  - BASOPHIL PERCENTAGE INCREASED [None]
  - HEADACHE [None]
  - HEPATIC NECROSIS [None]
  - HEPATIC STEATOSIS [None]
  - HEPATOCELLULAR INJURY [None]
  - HEPATOTOXICITY [None]
  - INJECTION SITE INFLAMMATION [None]
  - INJECTION SITE REACTION [None]
  - INSOMNIA [None]
  - PAIN [None]
